FAERS Safety Report 5877998-8 (Version None)
Quarter: 2008Q3

REPORT INFORMATION
  Report Type: 
  Country: None (occurrence: None)
  Receive Date: 20080910
  Receipt Date: 20080902
  Transmission Date: 20090109
  Serious: Yes (Death)
  Sender: FDA-Public Use
  Company Number: ES-WATSON-2008-05303

PATIENT
  Age: 65 Year
  Sex: Male

DRUGS (7)
  1. PREDNISONE TAB [Suspect]
     Indication: PROPHYLAXIS AGAINST TRANSPLANT REJECTION
     Dosage: UNK
     Dates: start: 19960101
  2. METHYLPREDNISOLONE [Suspect]
     Indication: PROPHYLAXIS AGAINST TRANSPLANT REJECTION
     Dosage: UNK
     Dates: start: 19960101
  3. CALCIUM CARBONATE [Suspect]
     Indication: HYPOCALCAEMIA
     Dosage: UP TO 12 GRAMS/DAY
     Route: 048
  4. CALCITRIOL [Suspect]
     Indication: HYPOCALCAEMIA
     Dosage: 1 MCG, DAILY
     Route: 048
  5. ACENOCOUMAROL [Suspect]
     Indication: ATRIAL FIBRILLATION
  6. MICROPHENOLATE [Concomitant]
     Indication: PROPHYLAXIS AGAINST TRANSPLANT REJECTION
     Dosage: UNK
     Dates: start: 19960101
  7. CYCLOSPORINE [Concomitant]
     Indication: PROPHYLAXIS AGAINST TRANSPLANT REJECTION
     Dosage: UNK
     Dates: start: 19960101

REACTIONS (1)
  - CALCIPHYLAXIS [None]
